FAERS Safety Report 11553397 (Version 4)
Quarter: 2021Q1

REPORT INFORMATION
  Report Type: Report from Study
  Country: US (occurrence: US)
  Receive Date: 20150925
  Receipt Date: 20210218
  Transmission Date: 20210419
  Serious: Yes (Hospitalization, Other)
  Sender: FDA-Public Use
  Company Number: US-TEVA-595264USA

PATIENT
  Age: 40 Year
  Sex: Female
  Weight: 53 kg

DRUGS (10)
  1. DOXORUBICIN [Suspect]
     Active Substance: DOXORUBICIN
     Indication: TRIPLE NEGATIVE BREAST CANCER
     Dosage: 4.2857 MG/M2 DAILY; LAST DOSE PRIOR TO AE WAS ON 21 AUG 2015
     Route: 042
     Dates: start: 20150724
  2. CYCLOPHOSPHAMIDE. [Suspect]
     Active Substance: CYCLOPHOSPHAMIDE
     Indication: TRIPLE NEGATIVE BREAST CANCER
     Dosage: 42.8571 MG/M2 DAILY; LAST DOSE PRIOR TO AE WAS ON 21 AUG 2015
     Route: 042
     Dates: start: 20150724
  3. CARBOPLATIN. [Suspect]
     Active Substance: CARBOPLATIN
     Indication: TRIPLE NEGATIVE BREAST CANCER
     Dosage: DAY 1 OF EVERY 21 DAY CYCLE
     Route: 042
     Dates: start: 20150408, end: 20150617
  4. PHENERGAN [Concomitant]
     Active Substance: PROMETHAZINE HYDROCHLORIDE
     Indication: NAUSEA
     Route: 048
     Dates: start: 20150326
  5. PACLITAXEL. [Suspect]
     Active Substance: PACLITAXEL
     Indication: TRIPLE NEGATIVE BREAST CANCER
     Route: 042
     Dates: start: 20150408, end: 20150709
  6. TYLENOL [Concomitant]
     Active Substance: ACETAMINOPHEN
     Indication: CHEMOTHERAPY
     Dosage: AS REQUIRED
     Route: 048
     Dates: start: 20150408
  7. IBUPROFEN. [Concomitant]
     Active Substance: IBUPROFEN
     Indication: CHEMOTHERAPY
     Dosage: AS REQUIRED
     Route: 048
     Dates: start: 20150724
  8. ABT? 888 (VELIPARIB) (BLINDED) [Suspect]
     Active Substance: VELIPARIB
     Indication: TRIPLE NEGATIVE BREAST CANCER
     Dosage: EVERY DAY FOR EACH 21 DAY CYCLE
     Route: 048
     Dates: start: 20150408, end: 20150707
  9. ZANTAC [Concomitant]
     Active Substance: RANITIDINE HYDROCHLORIDE
     Indication: PROPHYLAXIS
     Dosage: 300 MILLIGRAM DAILY;
     Route: 048
     Dates: start: 20150326
  10. ATIVAN [Concomitant]
     Active Substance: LORAZEPAM
     Indication: NAUSEA
     Dosage: AS REQUIRED
     Route: 048
     Dates: start: 20150326

REACTIONS (2)
  - Non-cardiac chest pain [Recovered/Resolved]
  - Syncope [Recovered/Resolved]

NARRATIVE: CASE EVENT DATE: 20150827
